FAERS Safety Report 4381481-9 (Version None)
Quarter: 2004Q2

REPORT INFORMATION
  Report Type: 
  Country: None (occurrence: None)
  Receive Date: 20040615
  Receipt Date: 20040601
  Transmission Date: 20050107
  Serious: Yes (Life-Threatening, Hospitalization, Disabling, Other)
  Sender: FDA-Public Use
  Company Number: US-JNJFOC-20040601789

PATIENT
  Age: 58 Year
  Sex: Female
  Weight: 58.514 kg

DRUGS (6)
  1. ACETAMINOPHEN [Suspect]
     Indication: ANALGESIC EFFECT
     Dosage: 500 MG, 3 IN 1 DAY, ORAL
     Route: 048
     Dates: start: 20021001, end: 20030102
  2. NEXIUM [Suspect]
  3. ACIPHEX [Concomitant]
  4. ALBUTEROL [Concomitant]
  5. LORTAB [Concomitant]
  6. ASPIRIN [Concomitant]

REACTIONS (45)
  - ABDOMINAL PAIN [None]
  - ACIDOSIS [None]
  - ACTIVATED PARTIAL THROMBOPLASTIN TIME PROLONGED [None]
  - AGGRESSION [None]
  - ANAEMIA [None]
  - ANOREXIA [None]
  - ASTHENIA [None]
  - BACK PAIN [None]
  - BLOOD POTASSIUM DECREASED [None]
  - CHILLS [None]
  - CLOSTRIDIUM COLITIS [None]
  - COAGULOPATHY [None]
  - COMA [None]
  - CONSTIPATION [None]
  - DEPRESSED LEVEL OF CONSCIOUSNESS [None]
  - DIZZINESS POSTURAL [None]
  - DRUG TOXICITY [None]
  - GALLBLADDER DISORDER [None]
  - GALLBLADDER OEDEMA [None]
  - GASTROINTESTINAL INFECTION [None]
  - HAEMODIALYSIS [None]
  - HEADACHE [None]
  - HEPATIC FAILURE [None]
  - HEPATOCELLULAR DAMAGE [None]
  - HYPOGLYCAEMIA [None]
  - HYPOTHERMIA [None]
  - INFECTION [None]
  - INSOMNIA [None]
  - ISCHAEMIC HEPATITIS [None]
  - LIVEDO RETICULARIS [None]
  - MARKEDLY REDUCED DIETARY INTAKE [None]
  - MENTAL STATUS CHANGES [None]
  - NAUSEA [None]
  - PLATELET DISORDER [None]
  - PNEUMONIA [None]
  - PROTHROMBIN TIME PROLONGED [None]
  - PUPILLARY REFLEX IMPAIRED [None]
  - PYREXIA [None]
  - RENAL DISORDER [None]
  - RENAL FAILURE ACUTE [None]
  - RESPIRATORY FAILURE [None]
  - SEPSIS [None]
  - SPLENOMEGALY [None]
  - VOMITING [None]
  - WEIGHT DECREASED [None]
